FAERS Safety Report 7626793-8 (Version None)
Quarter: 2011Q3

REPORT INFORMATION
  Report Type: 
  Country: None (occurrence: None)
  Receive Date: 20110721
  Receipt Date: 20110712
  Transmission Date: 20111222
  Serious: Yes (Hospitalization)
  Sender: FDA-Public Use
  Company Number: US-ASTRAZENECA-2011SE29275

PATIENT
  Age: 69 Year
  Sex: Female

DRUGS (3)
  1. NEXIUM [Suspect]
     Route: 048
  2. TOPROL-XL [Suspect]
     Indication: CARDIAC DISORDER
     Route: 048
  3. CRESTOR [Suspect]
     Indication: CARDIAC DISORDER
     Route: 048

REACTIONS (3)
  - MALAISE [None]
  - BACK DISORDER [None]
  - MUSCLE SPASMS [None]
